FAERS Safety Report 11982886 (Version 1)
Quarter: 2016Q1

REPORT INFORMATION
  Report Type: Spontaneous
  Country: FR (occurrence: FR)
  Receive Date: 20160201
  Receipt Date: 20160201
  Transmission Date: 20160526
  Serious: Yes (Hospitalization, Other)
  Sender: FDA-Public Use
  Company Number: FR-ASTELLAS-2016US003282

PATIENT
  Age: 66 Year
  Sex: Male

DRUGS (1)
  1. ADVAGRAF [Suspect]
     Active Substance: TACROLIMUS
     Indication: LIVER TRANSPLANT
     Dosage: 3 MG, DAILY.
     Route: 065

REACTIONS (5)
  - Decreased appetite [Unknown]
  - General physical health deterioration [Unknown]
  - Weight decreased [Unknown]
  - Sepsis [Unknown]
  - Aphthous ulcer [Unknown]
